FAERS Safety Report 5213252-5 (Version None)
Quarter: 2007Q1

REPORT INFORMATION
  Report Type: 
  Country: None (occurrence: None)
  Receive Date: 20070117
  Receipt Date: 20070117
  Transmission Date: 20070707
  Serious: Yes (Other)
  Sender: FDA-Public Use
  Company Number: None

PATIENT
  Sex: Male

DRUGS (5)
  1. ROSUVASTATIN 10 MG [Suspect]
     Indication: HYPERLIPIDAEMIA
     Dosage: 5 MG DAILY PO
     Route: 048
  2. METFORMIN HCL [Concomitant]
  3. GLYBURIDE [Concomitant]
  4. HYDROCHLOROTHIAZIDE [Concomitant]
  5. CHOLEST-OFF [Concomitant]

REACTIONS (1)
  - MYALGIA [None]
